FAERS Safety Report 20636070 (Version 5)
Quarter: 2023Q4

REPORT INFORMATION
  Report Type: Report from Study
  Country: AR (occurrence: AR)
  Receive Date: 20220325
  Receipt Date: 20231103
  Transmission Date: 20240110
  Serious: Yes (Hospitalization, Other)
  Sender: FDA-Public Use
  Company Number: AR-NOVARTISPH-NVSC2022AR068038

PATIENT
  Age: 39 Year
  Sex: Male

DRUGS (2)
  1. COSENTYX [Suspect]
     Active Substance: SECUKINUMAB
     Indication: Axial spondyloarthritis
     Dosage: 150 MG, QMO
     Route: 058
     Dates: start: 20210131
  2. COSENTYX [Suspect]
     Active Substance: SECUKINUMAB
     Dosage: 150 MG, QMO
     Route: 058
     Dates: start: 20220131

REACTIONS (6)
  - Kidney infection [Unknown]
  - Nephrocalcinosis [Unknown]
  - Renal failure [Unknown]
  - Nephrolithiasis [Unknown]
  - Renal disorder [Unknown]
  - Pain [Unknown]

NARRATIVE: CASE EVENT DATE: 20220316
